FAERS Safety Report 25994661 (Version 1)
Quarter: 2025Q4

REPORT INFORMATION
  Report Type: Spontaneous
  Country: US (occurrence: US)
  Receive Date: 20251104
  Receipt Date: 20251104
  Transmission Date: 20260118
  Serious: No
  Sender: CASPER PHARMA
  Company Number: US-CASPERPHARMA-US-2025RISSPO00550

PATIENT

DRUGS (1)
  1. VITAMIN A PALMITATE [Suspect]
     Active Substance: VITAMIN A PALMITATE
     Indication: Product used for unknown indication
     Route: 065

REACTIONS (2)
  - Poor quality product administered [Unknown]
  - Product storage error [Unknown]
